FAERS Safety Report 5488670-0 (Version None)
Quarter: 2007Q4

REPORT INFORMATION
  Report Type: 
  Country: None (occurrence: None)
  Receive Date: 20071016
  Receipt Date: 20071008
  Transmission Date: 20080405
  Serious: Yes (Other)
  Sender: FDA-Public Use
  Company Number: 056-C5013-07051492

PATIENT
  Age: 74 Year
  Sex: Female

DRUGS (17)
  1. CC-5013 (LENALIDOMIDE) (25 MILLIGRAM, CAPSULES) [Suspect]
     Indication: MULTIPLE MYELOMA
     Dosage: 25 MG, 1 IN 1 D, ORAL
     Route: 048
     Dates: start: 20070115, end: 20070426
  2. LEVOTHYROXINE SODIUM [Concomitant]
  3. AMLODIPINE BESYLATE [Concomitant]
  4. VASTAREL (TRIMETAZIDINE) [Concomitant]
  5. FEMARA [Concomitant]
  6. ASPIRIN [Concomitant]
  7. FUROSEMIDE [Concomitant]
  8. POTASSIUM CHLORIDE [Concomitant]
  9. BISOPROLOL FUMARATE [Concomitant]
  10. DURAGESIC-100 [Concomitant]
  11. PRIMPERAN TAB [Concomitant]
  12. FORLAX (MACROGOL) [Concomitant]
  13. TITANOREINE (TITANOREINE) [Concomitant]
  14. DAFLON (DIOSMIN) [Concomitant]
  15. OFLOXACIN [Concomitant]
  16. VENTOLIN [Concomitant]
  17. LOVENOX [Concomitant]

REACTIONS (9)
  - ARRHYTHMIA [None]
  - BREAST CANCER FEMALE [None]
  - CARDIAC ANEURYSM [None]
  - HAEMOGLOBIN DECREASED [None]
  - HAEMORRHOIDS [None]
  - ISCHAEMIC CARDIOMYOPATHY [None]
  - LEFT VENTRICULAR FAILURE [None]
  - OESTROGEN RECEPTOR ASSAY POSITIVE [None]
  - PROGESTERONE RECEPTOR ASSAY POSITIVE [None]
